FAERS Safety Report 6793950-2 (Version None)
Quarter: 2010Q2

REPORT INFORMATION
  Report Type: 
  Country: None (occurrence: None)
  Receive Date: 20100624
  Receipt Date: 20090722
  Transmission Date: 20101027
  Serious: Yes (Other)
  Sender: FDA-Public Use
  Company Number: US-PFIZER INC-2009180765

PATIENT
  Sex: Female
  Weight: 66 kg

DRUGS (12)
  1. PROVERA [Suspect]
     Indication: HORMONE REPLACEMENT THERAPY
     Route: 048
  2. OGEN [Suspect]
     Indication: HORMONE REPLACEMENT THERAPY
     Dosage: 0.625 MG, UNK
     Route: 048
     Dates: end: 19831230
  3. ESTROFEM [Suspect]
     Indication: HORMONE REPLACEMENT THERAPY
     Dosage: 2-10 MG
     Dates: start: 19690124, end: 19690901
  4. ESTRADIOL [Suspect]
     Indication: HORMONE REPLACEMENT THERAPY
     Dosage: 1 CC
     Route: 042
     Dates: start: 19700815, end: 19740101
  5. DEPO-ESTRADIOL [Suspect]
     Indication: HORMONE REPLACEMENT THERAPY
     Dosage: 2.5 MG, UNK
     Route: 042
     Dates: start: 19720619, end: 19780901
  6. ESTRADIOL VALERATE [Suspect]
     Indication: HORMONE REPLACEMENT THERAPY
     Dosage: 5 MG, UNK
     Route: 030
     Dates: start: 19750926, end: 19760430
  7. ESTRADIOL VALERATE [Suspect]
     Dosage: 1CC
     Route: 030
     Dates: start: 19760521, end: 19770627
  8. ESTRADIOL CYPIONATE [Suspect]
     Indication: HORMONE REPLACEMENT THERAPY
     Dosage: 1 CC
     Route: 042
     Dates: start: 19781002, end: 19781031
  9. PREMARIN [Suspect]
     Indication: HORMONE REPLACEMENT THERAPY
     Dosage: UNK
     Dates: start: 19850101, end: 19920904
  10. PREMARIN [Suspect]
     Indication: HORMONE REPLACEMENT THERAPY
     Dosage: 0.625 MG, UNK
     Route: 067
     Dates: start: 19900309, end: 19900101
  11. PREMPRO [Suspect]
     Indication: HORMONE REPLACEMENT THERAPY
  12. ESTRADIOL [Suspect]

REACTIONS (1)
  - BREAST CANCER FEMALE [None]
